FAERS Safety Report 22647296 (Version 1)
Quarter: 2023Q2

REPORT INFORMATION
  Report Type: Spontaneous
  Country: US (occurrence: US)
  Receive Date: 20230627
  Receipt Date: 20230627
  Transmission Date: 20230722
  Serious: No
  Sender: FDA-Public Use
  Company Number: US-BAUSCHBL-2023BNL005461

PATIENT
  Age: 83 Year
  Sex: Male
  Weight: 74.91 kg

DRUGS (2)
  1. OPCON-A [Suspect]
     Active Substance: NAPHAZOLINE HYDROCHLORIDE\PHENIRAMINE MALEATE
     Indication: Lacrimation increased
     Route: 047
     Dates: start: 20230614, end: 20230622
  2. XARELTO [Concomitant]
     Active Substance: RIVAROXABAN
     Indication: Product used for unknown indication
     Route: 065

REACTIONS (4)
  - Swelling face [Recovered/Resolved]
  - Skin exfoliation [Unknown]
  - Eye swelling [Recovered/Resolved]
  - Rash pruritic [Recovered/Resolved]

NARRATIVE: CASE EVENT DATE: 20230601
